FAERS Safety Report 12741373 (Version 5)
Quarter: 2020Q1

REPORT INFORMATION
  Report Type: Spontaneous
  Country: US (occurrence: US)
  Receive Date: 20160914
  Receipt Date: 20200212
  Transmission Date: 20200409
  Serious: Yes (Hospitalization)
  Sender: FDA-Public Use
  Company Number: US-PFIZER INC-2016426668

PATIENT
  Age: 85 Year
  Sex: Female
  Weight: 82.86 kg

DRUGS (16)
  1. ALLOPURINOL. [Concomitant]
     Active Substance: ALLOPURINOL
     Indication: GOUT
     Dosage: 100 MG, 1X/DAY (1 AM)
  2. ALLOPURINOL. [Concomitant]
     Active Substance: ALLOPURINOL
     Dosage: 50 MG, 1X/DAY  (NIGHT)
  3. CITALOPRAM [Concomitant]
     Active Substance: CITALOPRAM HYDROBROMIDE
     Indication: DEPRESSION
     Dosage: 20 MG, DAILY
  4. CLONIDINE. [Concomitant]
     Active Substance: CLONIDINE
     Indication: BLOOD PRESSURE ABNORMAL
     Dosage: 0.1 MG, 1X/DAY (IN AM)
  5. TOVIAZ [Suspect]
     Active Substance: FESOTERODINE FUMARATE
     Indication: INCONTINENCE
     Dosage: 8 MG, 1X/DAY
  6. CEPHALEXINE [Concomitant]
     Active Substance: CEPHALEXIN
     Indication: URINARY TRACT INFECTION
     Dosage: 250 MG, 1X/DAY  (NIGHT)
  7. L THYROXINE [Concomitant]
     Active Substance: LEVOTHYROXINE SODIUM
     Indication: THYROID DISORDER
     Dosage: 80 UG, 1X/DAY (1 AM)
  8. OLMESARTAN [Concomitant]
     Active Substance: OLMESARTAN
     Indication: BLOOD PRESSURE ABNORMAL
     Dosage: 20 MG, 1X/DAY
  9. POTCHLOR [Concomitant]
     Indication: BLOOD POTASSIUM ABNORMAL
     Dosage: 20 MEQ, 1X/DAY (IN AM)
  10. CLONAZEPAM. [Concomitant]
     Active Substance: CLONAZEPAM
     Indication: NIGHTMARE
     Dosage: UNK (0.5)
  11. LEVEMIR [Concomitant]
     Active Substance: INSULIN DETEMIR
     Indication: BLOOD INSULIN ABNORMAL
     Dosage: 12 IU, 1X/DAY (7PM)
  12. NOVOLOG [Concomitant]
     Active Substance: INSULIN ASPART
     Indication: DIABETES MELLITUS
     Dosage: UNK, AS NEEDED
  13. VITAMIN D3 [Concomitant]
     Active Substance: CHOLECALCIFEROL
     Indication: PHYTOTHERAPY
     Dosage: 1000 IU, 1X/DAY (NIGHT)
  14. POTCHLOR [Concomitant]
     Dosage: 10 MG, 1X/DAY (NIGHT)
  15. FUROSEMIDE. [Concomitant]
     Active Substance: FUROSEMIDE
     Indication: FLUID RETENTION
     Dosage: 80 MG, 1X/DAY (1 AM)
  16. CLONIDINE. [Concomitant]
     Active Substance: CLONIDINE
     Dosage: .01 MG, UNK (NIGHT)

REACTIONS (3)
  - Hypoacusis [Not Recovered/Not Resolved]
  - Mental disorder [Not Recovered/Not Resolved]
  - Malaise [Not Recovered/Not Resolved]
